FAERS Safety Report 15138642 (Version 2)
Quarter: 2018Q3

REPORT INFORMATION
  Report Type: Spontaneous
  Country: US (occurrence: US)
  Receive Date: 20180713
  Receipt Date: 20180716
  Transmission Date: 20181010
  Serious: No
  Sender: FDA-Public Use
  Company Number: US-BIOGEN-2018BI00607606

PATIENT
  Age: 51 Year
  Sex: Female

DRUGS (1)
  1. TECFIDERA [Suspect]
     Active Substance: DIMETHYL FUMARATE
     Indication: MULTIPLE SCLEROSIS
     Dosage: TAKE 120 MG CAPSULE TWICE A DAY FOR 7 DAYS, THEN TAKE ONE 240 MG CAPSULE TWICE A DAY FOR 23 DAYS.
     Route: 048
     Dates: start: 20180626, end: 20180711

REACTIONS (5)
  - Gastric disorder [Recovered/Resolved]
  - Headache [Unknown]
  - Memory impairment [Unknown]
  - Diarrhoea [Unknown]
  - Drug intolerance [Unknown]

NARRATIVE: CASE EVENT DATE: 201806
